FAERS Safety Report 21175403 (Version 4)
Quarter: 2022Q4

REPORT INFORMATION
  Report Type: Spontaneous
  Country: US (occurrence: US)
  Receive Date: 20220805
  Receipt Date: 20221003
  Transmission Date: 20230113
  Serious: Yes (Hospitalization, Other)
  Sender: FDA-Public Use
  Company Number: US-009507513-2207USA009019

PATIENT
  Age: 65 Year
  Sex: Female

DRUGS (21)
  1. KEYTRUDA [Suspect]
     Active Substance: PEMBROLIZUMAB
     Indication: Colorectal adenocarcinoma
     Dosage: UNK
     Dates: start: 20220714
  2. LENVATINIB MESYLATE [Suspect]
     Active Substance: LENVATINIB MESYLATE
     Indication: Colorectal adenocarcinoma
     Dosage: UNK
     Route: 048
     Dates: start: 20220620
  3. BMS-986207 [Suspect]
     Active Substance: BMS-986207
     Indication: Colorectal adenocarcinoma
     Dosage: 28.57 MILLIGRAM(S) (600 MILLIGRAM(S)), 1 IN 3 WEEK
     Route: 042
     Dates: start: 20210518, end: 20220413
  4. IPILIMUMAB [Suspect]
     Active Substance: IPILIMUMAB
     Indication: Colorectal adenocarcinoma
     Dosage: 1.666 MILLIGRAM(S) (70 MILLIGRAM(S)), 1 IN 6 WEEK
     Route: 042
     Dates: start: 20210518, end: 20220324
  5. NIVOLUMAB [Suspect]
     Active Substance: NIVOLUMAB
     Indication: Colorectal adenocarcinoma
     Dosage: 17.14 MILLIGRAM(S) (360 MILLIGRAM(S)),1 IN 3 WEEK
     Route: 042
     Dates: start: 20210518, end: 20220413
  6. ECOTRIN [Concomitant]
     Active Substance: ASPIRIN
     Indication: Product used for unknown indication
     Dosage: 81 MILLIGRAM
     Dates: start: 20210427
  7. NORVASC [Concomitant]
     Active Substance: AMLODIPINE BESYLATE
     Indication: Product used for unknown indication
     Dosage: 5 MILLIGRAM
     Dates: start: 20210427
  8. ATORVASTATIN [Concomitant]
     Active Substance: ATORVASTATIN
     Indication: Product used for unknown indication
     Dosage: 10 MILLIGRAM
     Dates: start: 20210427
  9. FLUTICASONE [Concomitant]
     Active Substance: FLUTICASONE
     Indication: Product used for unknown indication
     Dosage: UNK
     Dates: start: 20210427
  10. GABAPENTIN [Concomitant]
     Active Substance: GABAPENTIN
     Indication: Product used for unknown indication
     Dosage: 100 MILLIGRAM
     Dates: start: 20210427
  11. MONTELUKAST [Concomitant]
     Active Substance: MONTELUKAST SODIUM
     Indication: Product used for unknown indication
     Dosage: 10 MILLIGRAM
     Dates: start: 20210427
  12. ZOFRON [ONDANSETRON] [Concomitant]
     Indication: Product used for unknown indication
     Dosage: 4 MILLIGRAM
     Dates: start: 20210427
  13. BIOTIN [Concomitant]
     Active Substance: BIOTIN
     Indication: Product used for unknown indication
     Dosage: 5000 MICROGRAM
     Dates: start: 20210506
  14. MIRALAX [Concomitant]
     Active Substance: POLYETHYLENE GLYCOL 3350
     Indication: Product used for unknown indication
     Dosage: 17 GRAM
     Dates: start: 20210506
  15. LORATADINE [Concomitant]
     Active Substance: LORATADINE
     Indication: Product used for unknown indication
     Dosage: 10 MILLIGRAM
     Dates: start: 20210518
  16. OMEPRAZOLE [Concomitant]
     Active Substance: OMEPRAZOLE
     Indication: Product used for unknown indication
     Dosage: 20 MILLIGRAM
     Dates: start: 20210518
  17. OXYCODONE [Concomitant]
     Active Substance: OXYCODONE
     Indication: Product used for unknown indication
     Dosage: 20 MILLIGRAM, Q8H
     Route: 048
     Dates: start: 20210518
  18. OXYCODONE [Concomitant]
     Active Substance: OXYCODONE
     Indication: Abdominal pain
  19. GRAMICIDIN\NEOMYCIN SULFATE\POLYMYXIN B SULFATE [Concomitant]
     Active Substance: GRAMICIDIN\NEOMYCIN SULFATE\POLYMYXIN B SULFATE
     Indication: Adverse event
     Dosage: UNK
     Dates: start: 20210715
  20. PREDNISONE [Concomitant]
     Active Substance: PREDNISONE
     Indication: Product used for unknown indication
     Dosage: 10 MILLIGRAM
     Dates: start: 20210904
  21. VALIUM [Concomitant]
     Active Substance: DIAZEPAM
     Indication: Abdominal pain
     Dosage: 5 MILLIGRAM, Q8H
     Route: 048
     Dates: start: 20220706

REACTIONS (1)
  - Enterocolitis [Recovered/Resolved]

NARRATIVE: CASE EVENT DATE: 20220720
